FAERS Safety Report 7627482-6 (Version None)
Quarter: 2011Q3

REPORT INFORMATION
  Report Type: 
  Country: None (occurrence: None)
  Receive Date: 20110721
  Receipt Date: 20110712
  Transmission Date: 20111222
  Serious: Yes (Hospitalization)
  Sender: FDA-Public Use
  Company Number: US-ELI_LILLY_AND_COMPANY-US201107003417

PATIENT
  Age: 47 Year
  Sex: Female

DRUGS (3)
  1. BYETTA [Suspect]
     Indication: TYPE 2 DIABETES MELLITUS
     Dosage: UNK
     Route: 058
  2. METFORMIN HCL [Concomitant]
     Dosage: 500 UG, BID
     Route: 048
  3. OPIOIDS [Concomitant]
     Dosage: UNK

REACTIONS (1)
  - RENAL FAILURE [None]
